FAERS Safety Report 21024230 (Version 4)
Quarter: 2022Q3

REPORT INFORMATION
  Report Type: Report from Study
  Country: CA (occurrence: CA)
  Receive Date: 20220629
  Receipt Date: 20220902
  Transmission Date: 20221027
  Serious: Yes (Other)
  Sender: FDA-Public Use
  Company Number: CA-JNJFOC-20220657609

PATIENT
  Age: 60 Year
  Sex: Male
  Weight: 100 kg

DRUGS (1)
  1. REMICADE [Suspect]
     Active Substance: INFLIXIMAB
     Indication: Colitis ulcerative
     Dosage: REMICADE CAN BE RESUMED AT END OF AUG-2022 WITH SAME DOSE 700 MG EVERY 8 WEEK.?PATIENT PRESCRIBED RE
     Route: 042
     Dates: start: 20080117

REACTIONS (2)
  - Tonsil cancer [Unknown]
  - Off label use [Unknown]

NARRATIVE: CASE EVENT DATE: 20220829
